FAERS Safety Report 19160730 (Version 2)
Quarter: 2021Q4

REPORT INFORMATION
  Report Type: Spontaneous
  Country: GB (occurrence: GB)
  Receive Date: 20210421
  Receipt Date: 20211122
  Transmission Date: 20220303
  Serious: Yes (Other)
  Sender: FDA-Public Use
  Company Number: GB-MHRA-TPP22229015C9415375YC1618244479826

PATIENT
  Age: 43 Year
  Sex: Female
  Weight: 82 kg

DRUGS (5)
  1. TRAMADOL [Suspect]
     Active Substance: TRAMADOL
     Indication: Ill-defined disorder
     Dosage: UNK
     Route: 065
     Dates: start: 20210412
  2. CLOBETASOL PROPIONATE [Concomitant]
     Active Substance: CLOBETASOL PROPIONATE
     Indication: Ill-defined disorder
     Dosage: APPLY 1-2 TIMES/DAY
     Route: 065
     Dates: start: 20210225
  3. HYDROCORTISONE [Concomitant]
     Active Substance: HYDROCORTISONE
     Indication: Ill-defined disorder
     Dosage: UNK, TWO TIMES A DAY
     Route: 065
     Dates: start: 20210225
  4. OMEPRAZOLE [Concomitant]
     Active Substance: OMEPRAZOLE
     Indication: Ill-defined disorder
     Dosage: 1 DOSAGE FORM, ONCE A DAY(TAKE ONE DAILY)
     Route: 065
     Dates: start: 20200415
  5. PROPRANOLOL [Concomitant]
     Active Substance: PROPRANOLOL HYDROCHLORIDE
     Indication: Ill-defined disorder
     Dosage: 1-2 TO BE TAKEN THREE TIMES DAILY WHEN REQUIRED...
     Route: 065
     Dates: start: 20210317

REACTIONS (1)
  - Pruritus [Recovered/Resolved]

NARRATIVE: CASE EVENT DATE: 20210412
